FAERS Safety Report 7800341-1 (Version None)
Quarter: 2011Q4

REPORT INFORMATION
  Report Type: 
  Country: None (occurrence: None)
  Receive Date: 20111006
  Receipt Date: 20110929
  Transmission Date: 20120403
  Serious: Yes (Hospitalization, Other)
  Sender: FDA-Public Use
  Company Number: JP-BRISTOL-MYERS SQUIBB COMPANY-15894710

PATIENT
  Age: 70 Year
  Sex: Male

DRUGS (1)
  1. MAXIPIME [Suspect]
     Indication: INFECTION
     Dosage: INTERRUPTED:29JUN11
     Route: 041
     Dates: start: 20110608

REACTIONS (2)
  - HYPOAESTHESIA [None]
  - OVERDOSE [None]
